FAERS Safety Report 20440312 (Version 1)
Quarter: 2022Q1

REPORT INFORMATION
  Report Type: Spontaneous
  Country: US (occurrence: None)
  Receive Date: 20220206
  Receipt Date: 20220206
  Transmission Date: 20220423
  Serious: Yes (Other)
  Sender: FDA-Public Use
  Company Number: None

PATIENT
  Age: 79 Year
  Sex: Female
  Weight: 66.6 kg

DRUGS (12)
  1. PROLIA [Suspect]
     Active Substance: DENOSUMAB
     Indication: Osteoporosis
     Dosage: OTHER QUANTITY : 1 INJECTION(S);?OTHER FREQUENCY : 6 MONTHS;?
     Route: 030
     Dates: start: 20150615, end: 20201220
  2. AMLODIPINE BESYLATE [Concomitant]
     Active Substance: AMLODIPINE BESYLATE
  3. METFORMIN [Concomitant]
     Active Substance: METFORMIN HYDROCHLORIDE
  4. annoro Ellipta [Concomitant]
  5. CALCIUM [Concomitant]
     Active Substance: CALCIUM
  6. ASPIRIN [Concomitant]
     Active Substance: ASPIRIN
  7. VITAMIN B12 [Concomitant]
     Active Substance: CYANOCOBALAMIN
  8. VITAMIN D3 [Concomitant]
     Active Substance: CHOLECALCIFEROL
  9. BIOTIN [Concomitant]
     Active Substance: BIOTIN
  10. HERBALS\TURMERIC [Concomitant]
     Active Substance: HERBALS\TURMERIC
  11. MAGNESIUM [Concomitant]
     Active Substance: MAGNESIUM
  12. POTASSIUM [Concomitant]
     Active Substance: POTASSIUM

REACTIONS (8)
  - Screaming [None]
  - Muscle spasms [None]
  - Gait disturbance [None]
  - Muscle spasms [None]
  - Psoriasis [None]
  - Dry skin [None]
  - Osteonecrosis of jaw [None]
  - Tooth loss [None]

NARRATIVE: CASE EVENT DATE: 20220103
